FAERS Safety Report 17082315 (Version 1)
Quarter: 2019Q4

REPORT INFORMATION
  Report Type: Report from Study
  Country: PK (occurrence: PK)
  Receive Date: 20191127
  Receipt Date: 20191127
  Transmission Date: 20200122
  Serious: Yes (Death)
  Sender: FDA-Public Use
  Company Number: NVSC2019PK049955

PATIENT
  Age: 43 Year
  Sex: Male
  Weight: 66 kg

DRUGS (1)
  1. GLIVEC [Suspect]
     Active Substance: IMATINIB MESYLATE
     Indication: GASTROINTESTINAL STROMAL TUMOUR
     Dosage: 4 DF, QD (400 MG, QD)
     Route: 048
     Dates: start: 20170909, end: 20190510

REACTIONS (1)
  - Death [Fatal]

NARRATIVE: CASE EVENT DATE: 20190516
